FAERS Safety Report 12524592 (Version 5)
Quarter: 2016Q3

REPORT INFORMATION
  Report Type: Report from Study
  Country: UA (occurrence: UA)
  Receive Date: 20160704
  Receipt Date: 20160817
  Transmission Date: 20161109
  Serious: Yes (Other)
  Sender: FDA-Public Use
  Company Number: UA-TEVA-670873ISR

PATIENT
  Age: 17 Year
  Sex: Male
  Weight: 55.4 kg

DRUGS (7)
  1. HOLOXAN [Suspect]
     Active Substance: IFOSFAMIDE
     Dosage: 4710 MILLIGRAM DAILY;
     Route: 042
     Dates: start: 20160516, end: 20160518
  2. DOXORUBICIN-TEVA [Suspect]
     Active Substance: DOXORUBICIN
     Dosage: 31.4 MILLIGRAM DAILY;
     Route: 042
     Dates: start: 20160516, end: 20160518
  3. ETOPOSIDE-TEVA [Suspect]
     Active Substance: ETOPOSIDE
     Dosage: 235.5 MILLIGRAM DAILY;
     Route: 042
     Dates: start: 20160516, end: 20160518
  4. VINCRISTINE-TEVA [Suspect]
     Active Substance: VINCRISTINE
     Dosage: 2 MILLIGRAM DAILY;
     Route: 042
     Dates: start: 20160516, end: 20160516
  5. NEUPOGEN [Suspect]
     Active Substance: FILGRASTIM
     Indication: NEUTROPENIA
     Dosage: 275 MILLIGRAM DAILY; OL PHASE
     Route: 058
     Dates: start: 20160526, end: 20160529
  6. LIPEGFILGRASTIM [Suspect]
     Active Substance: LIPEGFILGRASTIM
     Dosage: 0 MILLIGRAM DAILY; OL PHASE
     Route: 058
  7. NEUPOGEN [Suspect]
     Active Substance: FILGRASTIM
     Indication: COLONY STIMULATING FACTOR THERAPY
     Dosage: 275 MICROGRAM DAILY; OL PHASE
     Route: 058
     Dates: start: 20160519, end: 20160523

REACTIONS (1)
  - Drug-induced liver injury [Recovered/Resolved]

NARRATIVE: CASE EVENT DATE: 20160616
